FAERS Safety Report 5880608-7 (Version None)
Quarter: 2008Q3

REPORT INFORMATION
  Report Type: 
  Country: None (occurrence: None)
  Receive Date: 20080912
  Receipt Date: 20080604
  Transmission Date: 20090109
  Serious: No
  Sender: FDA-Public Use
  Company Number: US-ABBOTT-08P-163-0455018-00

PATIENT
  Sex: Female
  Weight: 56.75 kg

DRUGS (3)
  1. HUMIRA [Suspect]
     Indication: BEHCET'S SYNDROME
     Route: 058
     Dates: start: 20040101, end: 20080301
  2. RABEPRAZOLE SODIUM [Concomitant]
     Indication: GASTROOESOPHAGEAL REFLUX DISEASE
     Route: 048
  3. HYDROCODONE BITARTRATE [Concomitant]
     Indication: PAIN
     Dosage: 1-2 TABLETS
     Route: 048
     Dates: start: 20080501

REACTIONS (7)
  - ARTHRALGIA [None]
  - ARTHROPOD BITE [None]
  - JOINT SWELLING [None]
  - LABORATORY TEST ABNORMAL [None]
  - LUPUS-LIKE SYNDROME [None]
  - ORAL DISORDER [None]
  - VAGINAL LESION [None]
